FAERS Safety Report 19135190 (Version 1)
Quarter: 2021Q2

REPORT INFORMATION
  Report Type: Spontaneous
  Country: US (occurrence: US)
  Receive Date: 20210414
  Receipt Date: 20210414
  Transmission Date: 20210717
  Serious: No
  Sender: FDA-Public Use
  Company Number: US-ELI_LILLY_AND_COMPANY-US202103010615

PATIENT
  Sex: Female

DRUGS (4)
  1. BASAGLAR [Suspect]
     Active Substance: INSULIN GLARGINE
     Indication: PRODUCT USED FOR UNKNOWN INDICATION
     Dosage: 80 INTERNATIONAL UNIT, BID (IN THE MORNING AND AT NIGHT)
     Route: 058
     Dates: start: 20210310
  2. BASAGLAR [Suspect]
     Active Substance: INSULIN GLARGINE
     Indication: PRODUCT USED FOR UNKNOWN INDICATION
     Dosage: 80 INTERNATIONAL UNIT, BID (IN THE MORNING AND AT NIGHT)
     Route: 058
     Dates: start: 20210310
  3. BASAGLAR [Suspect]
     Active Substance: INSULIN GLARGINE
     Dosage: 80 INTERNATIONAL UNIT, BID (IN THE MORNING AND AT NIGHT)
     Route: 058
     Dates: start: 20210310
  4. BASAGLAR [Suspect]
     Active Substance: INSULIN GLARGINE
     Dosage: 80 INTERNATIONAL UNIT, BID (IN THE MORNING AND AT NIGHT)
     Route: 058
     Dates: start: 20210310

REACTIONS (3)
  - Inappropriate schedule of product administration [Unknown]
  - Wrong dose [Unknown]
  - Blood glucose decreased [Recovered/Resolved]
